FAERS Safety Report 5500063-6 (Version None)
Quarter: 2007Q4

REPORT INFORMATION
  Report Type: 
  Country: None (occurrence: None)
  Receive Date: 20071024
  Receipt Date: 20071009
  Transmission Date: 20080405
  Serious: Yes (Other)
  Sender: FDA-Public Use
  Company Number: 100#08#2007-03940

PATIENT
  Age: 52 Year
  Sex: Male

DRUGS (2)
  1. CYCLOSPORINE [Suspect]
     Indication: RENAL TRANSPLANT
     Dosage: 175 MG; 50 MG;
     Route: 048
  2. PREDNISONE [Suspect]
     Indication: RENAL TRANSPLANT
     Dosage: 10 MG
     Route: 048

REACTIONS (5)
  - CARCINOMA IN SITU OF EYE [None]
  - CD4 LYMPHOCYTES DECREASED [None]
  - CYTOMEGALOVIRUS CHORIORETINITIS [None]
  - HUMAN PAPILLOMA VIRUS TEST POSITIVE [None]
  - SKIN PAPILLOMA [None]
